FAERS Safety Report 5852641-2 (Version None)
Quarter: 2008Q3

REPORT INFORMATION
  Report Type: 
  Country: None (occurrence: None)
  Receive Date: 20080821
  Receipt Date: 20080814
  Transmission Date: 20090109
  Serious: Yes (Hospitalization)
  Sender: FDA-Public Use
  Company Number: B0530101A

PATIENT
  Age: 88 Year
  Sex: Female

DRUGS (4)
  1. ZOVIRAX [Suspect]
     Indication: HERPES ZOSTER
     Dosage: 250MG THREE TIMES PER DAY
     Route: 042
     Dates: start: 20080713, end: 20080717
  2. VALTREX [Suspect]
     Indication: HERPES ZOSTER
     Route: 048
     Dates: start: 20080711
  3. HALCION [Concomitant]
     Route: 048
  4. PREDONINE [Concomitant]
     Route: 065

REACTIONS (7)
  - ALTERED STATE OF CONSCIOUSNESS [None]
  - ENCEPHALOPATHY [None]
  - GAIT DISTURBANCE [None]
  - MENTAL DISORDER [None]
  - OVERDOSE [None]
  - PSYCHIATRIC SYMPTOM [None]
  - RESTLESSNESS [None]
